FAERS Safety Report 15471715 (Version 5)
Quarter: 2018Q4

REPORT INFORMATION
  Report Type: Report from Study
  Country: None (occurrence: CH)
  Receive Date: 20181008
  Receipt Date: 20181126
  Transmission Date: 20190205
  Serious: Yes (Hospitalization)
  Sender: FDA-Public Use
  Company Number: CH-ABBVIE-18K-151-2290364-00

PATIENT
  Sex: Female
  Weight: 43.7 kg

DRUGS (17)
  1. DUODOPA [Suspect]
     Active Substance: CARBIDOPA\LEVODOPA
     Indication: PARKINSON^S DISEASE
     Dosage: MD: 10ML CD: 3.6ML/H ED: 1.0ML 16H THERAPY
     Route: 050
     Dates: start: 20180126
  2. INDERAL [Concomitant]
     Active Substance: PROPRANOLOL HYDROCHLORIDE
     Indication: PRODUCT USED FOR UNKNOWN INDICATION
     Dosage: AT 7 AM / 11 AM / 3 PM / 7 PM
  3. NEXIUM [Concomitant]
     Active Substance: ESOMEPRAZOLE MAGNESIUM
     Indication: PRODUCT USED FOR UNKNOWN INDICATION
     Dosage: IN THE MORNING
  4. MAGNESIUM [Concomitant]
     Active Substance: MAGNESIUM
     Indication: PRODUCT USED FOR UNKNOWN INDICATION
  5. QUETIAPIN [Concomitant]
     Active Substance: QUETIAPINE
     Dosage: AT 18PM
     Dates: start: 201810
  6. DUODOPA [Suspect]
     Active Substance: CARBIDOPA\LEVODOPA
     Dosage: MD: 10ML CD: 3.6ML/H ED: 2.0ML?16H THERAPY
     Route: 050
     Dates: start: 20180409, end: 2018
  7. DUODOPA [Suspect]
     Active Substance: CARBIDOPA\LEVODOPA
     Dosage: MD: 3.0ML, CRD: 4.3ML/H CRN 2.0ML/H?ED: 2.0 ML
     Route: 050
     Dates: start: 2018
  8. ASPIRIN CARDIO [Concomitant]
     Active Substance: ASPIRIN
     Indication: PRODUCT USED FOR UNKNOWN INDICATION
     Dosage: IN THE MORNING
  9. DUODOPA [Suspect]
     Active Substance: CARBIDOPA\LEVODOPA
     Dosage: MD: 3.0ML, CRD: 4.3ML/H CRR 2.0ML/H?ED: 2.5ML
     Route: 050
     Dates: start: 2018
  10. QUETIAPIN [Concomitant]
     Active Substance: QUETIAPINE
     Indication: PRODUCT USED FOR UNKNOWN INDICATION
     Dosage: AT 22PM
     Dates: end: 2018
  11. DUODOPA [Suspect]
     Active Substance: CARBIDOPA\LEVODOPA
     Dosage: MD: 9.0ML, CD: 3.5ML/H  ED: 2.0ML?16H THERAPY
     Route: 050
     Dates: start: 2018, end: 2018
  12. QUETIAPINUM [Concomitant]
     Indication: PRODUCT USED FOR UNKNOWN INDICATION
     Dosage: AT 10PM
  13. CARBIDOPA/LEVODOPA CR [Concomitant]
     Indication: PRODUCT USED FOR UNKNOWN INDICATION
     Dosage: 25/100 AT 10PM AND AT NIGHT
  14. VITAMIN B12 [Concomitant]
     Active Substance: CYANOCOBALAMIN
     Indication: PRODUCT USED FOR UNKNOWN INDICATION
  15. DUODOPA [Suspect]
     Active Substance: CARBIDOPA\LEVODOPA
     Dosage: MD: 3.0ML, CRD: 4.3ML/H CRN 2.2ML/H ED: 2.5ML TIME BLOCKED 3HOURS 24H THERAPY
     Route: 050
     Dates: start: 201810, end: 20181101
  16. DUODOPA [Suspect]
     Active Substance: CARBIDOPA\LEVODOPA
     Dosage: MD 3.0ML; CRD 4.3ML/H; CRN 2.1ML/H; ED 2.7ML; 24H THERAPY?1 CASSETTE/24HRS
     Route: 050
     Dates: start: 20181101
  17. MOVICOL [Concomitant]
     Active Substance: POLYETHYLENE GLYCOL 3350\POTASSIUM CHLORIDE\SODIUM BICARBONATE\SODIUM CHLORIDE
     Indication: PRODUCT USED FOR UNKNOWN INDICATION
     Dosage: SACHET, IN THE MORNING

REACTIONS (20)
  - Decreased appetite [Unknown]
  - Stoma site pain [Recovering/Resolving]
  - Stoma site erythema [Recovered/Resolved]
  - Device issue [Unknown]
  - Anxiety [Not Recovered/Not Resolved]
  - Dystonia [Unknown]
  - Dysphagia [Not Recovered/Not Resolved]
  - Confusional state [Not Recovered/Not Resolved]
  - Pain in extremity [Unknown]
  - Hallucination [Not Recovered/Not Resolved]
  - On and off phenomenon [Unknown]
  - Incorrect dose administered [Recovered/Resolved]
  - Medical device site scab [Recovering/Resolving]
  - Malaise [Unknown]
  - Akinesia [Unknown]
  - Somnolence [Not Recovered/Not Resolved]
  - Weight decreased [Unknown]
  - Stoma site reaction [Recovering/Resolving]
  - Stoma site discharge [Recovering/Resolving]
  - Dyskinesia [Recovered/Resolved]

NARRATIVE: CASE EVENT DATE: 2018
